FAERS Safety Report 7655580-X (Version None)
Quarter: 2011Q3

REPORT INFORMATION
  Report Type: 
  Country: None (occurrence: None)
  Receive Date: 20110804
  Receipt Date: 20110728
  Transmission Date: 20111222
  Serious: Yes (Other)
  Sender: FDA-Public Use
  Company Number: PHHY2011AU68510

PATIENT
  Age: 89 Year
  Sex: Male

DRUGS (4)
  1. VALPROATE SODIUM [Concomitant]
     Dosage: UNK UKN, UNK
  2. CARBIDOPA + LEVODOPA [Concomitant]
     Dosage: UNK UKN, UNK
     Dates: start: 20090101, end: 20110706
  3. STALEVO 100 [Suspect]
     Dosage: UNK UKN, UNK
     Dates: start: 20100706
  4. PRAMIPEXOLE DIHYCHLLORIDE [Concomitant]
     Dosage: UNK UKN, UNK
     Dates: end: 20110706

REACTIONS (3)
  - ENCEPHALOPATHY [None]
  - CONVULSION [None]
  - DEMENTIA [None]
